FAERS Safety Report 9186405 (Version 1)
Quarter: 2013Q1

REPORT INFORMATION
  Report Type: Spontaneous
  Country: US (occurrence: US)
  Receive Date: 20130325
  Receipt Date: 20130325
  Transmission Date: 20140127
  Serious: No
  Sender: FDA-Public Use
  Company Number: US-TEVA-393769USA

PATIENT
  Sex: Female
  Weight: 53.57 kg

DRUGS (7)
  1. AZILECT [Suspect]
     Indication: PARKINSON^S DISEASE
     Dosage: .5 MILLIGRAM DAILY;
     Route: 048
     Dates: start: 201110
  2. CARBIDOPA W/LEVODOPA [Concomitant]
     Indication: PARKINSON^S DISEASE
     Dosage: 25 MG/100 MG
     Route: 048
     Dates: start: 201302
  3. METOPROLOL [Concomitant]
     Indication: HYPERTENSION
     Dosage: 50 MILLIGRAM DAILY;
     Route: 048
  4. LEVETIRACETAM [Concomitant]
  5. FLUDROCORTISONE [Concomitant]
     Dosage: .1 MILLIGRAM DAILY;
     Route: 048
  6. AGGRENOX [Concomitant]
     Dosage: 25/200 MG
     Route: 048
  7. NEW PD MEDICATION [Concomitant]
     Indication: PARKINSON^S DISEASE
     Route: 048
     Dates: start: 201302

REACTIONS (4)
  - Hallucination [Not Recovered/Not Resolved]
  - Labile blood pressure [Not Recovered/Not Resolved]
  - Dizziness [Not Recovered/Not Resolved]
  - Migraine [Not Recovered/Not Resolved]
